FAERS Safety Report 6433627-6 (Version None)
Quarter: 2009Q4

REPORT INFORMATION
  Report Type: 
  Country: None (occurrence: None)
  Receive Date: 20091106
  Receipt Date: 20091106
  Transmission Date: 20100525
  Serious: Yes (Hospitalization)
  Sender: FDA-Public Use
  Company Number: None

PATIENT
  Age: 18 Year
  Sex: Male

DRUGS (1)
  1. IBUPROFEN [Suspect]
     Indication: PAIN
     Dosage: 800 MG UNKNOWN PO
     Route: 048
     Dates: start: 20090726, end: 20090805

REACTIONS (2)
  - ABDOMINAL PAIN LOWER [None]
  - RENAL FAILURE ACUTE [None]
